FAERS Safety Report 25711852 (Version 1)
Quarter: 2025Q3

REPORT INFORMATION
  Report Type: Spontaneous
  Country: EU (occurrence: EU)
  Receive Date: 20250821
  Receipt Date: 20250821
  Transmission Date: 20251020
  Serious: Yes (Other)
  Sender: ABBVIE
  Company Number: EU-MLMSERVICE-20250808-PI604343-00102-1

PATIENT
  Age: 43 Year

DRUGS (1)
  1. CITALOPRAM [Suspect]
     Active Substance: CITALOPRAM
     Indication: Anxiety
     Route: 065

REACTIONS (8)
  - Haematochezia [Recovering/Resolving]
  - Constipation [Recovering/Resolving]
  - Thirst [Recovering/Resolving]
  - Abdominal pain upper [Recovering/Resolving]
  - Treatment noncompliance [Unknown]
  - Toxicity to various agents [Recovering/Resolving]
  - Abdominal distension [Recovering/Resolving]
  - Polydipsia [Recovering/Resolving]
